FAERS Safety Report 9209645 (Version 2)
Quarter: 2014Q1

REPORT INFORMATION
  Report Type: Spontaneous
  Country: US (occurrence: US)
  Receive Date: 20130404
  Receipt Date: 20140123
  Transmission Date: 20141002
  Serious: Yes (Other)
  Sender: FDA-Public Use
  Company Number: US-BAYER-2013-040292

PATIENT
  Age: 17 Year
  Sex: Female

DRUGS (5)
  1. YASMIN [Suspect]
  2. YAZ [Suspect]
  3. IBUPROFEN [Concomitant]
     Dosage: 800 MG, TID
  4. BENZACLIN [Concomitant]
     Dosage: 1 % APPLY TWICE DAILY
  5. PHENERGAN [Concomitant]
     Dosage: 25 MG 1 TAB Q6H

REACTIONS (5)
  - Cholecystitis chronic [None]
  - Gallbladder injury [None]
  - Injury [None]
  - Pain [None]
  - Anxiety [None]
